FAERS Safety Report 7759146-2 (Version None)
Quarter: 2011Q3

REPORT INFORMATION
  Report Type: 
  Country: None (occurrence: None)
  Receive Date: 20110919
  Receipt Date: 20110912
  Transmission Date: 20111222
  Serious: Yes (Death, Life-Threatening, Hospitalization)
  Sender: FDA-Public Use
  Company Number: PHHO2008DE09584

PATIENT
  Sex: Male
  Weight: 75 kg

DRUGS (6)
  1. SANDIMMUNE [Suspect]
     Indication: RENAL TRANSPLANT
     Dosage: UNK
     Dates: end: 20080915
  2. PROGRAF [Suspect]
     Indication: RENAL TRANSPLANT
     Dosage: UNK
     Dates: start: 20080824, end: 20080906
  3. EVEROLIMUS [Suspect]
     Indication: RENAL TRANSPLANT
     Dosage: 1.5 MG, DAILY
     Dates: start: 20080801, end: 20080824
  4. MYFORTIC [Suspect]
     Indication: RENAL TRANSPLANT
     Dosage: UNK
     Dates: end: 20080824
  5. MYCOPHENOLATE MOFETIL [Suspect]
     Indication: RENAL TRANSPLANT
  6. PREDNISOLONE [Concomitant]
     Indication: RENAL TRANSPLANT
     Dosage: UNK

REACTIONS (9)
  - BRAIN OEDEMA [None]
  - ENTEROCOCCAL INFECTION [None]
  - RESPIRATION ABNORMAL [None]
  - EPSTEIN-BARR VIRUS ASSOCIATED LYMPHOPROLIFERATIVE DISORDER [None]
  - PYREXIA [None]
  - SEPSIS [None]
  - PNEUMONIA [None]
  - STAPHYLOCOCCAL INFECTION [None]
  - ENCEPHALITIS [None]
